APPROVED DRUG PRODUCT: GANCICLOVIR SODIUM
Active Ingredient: GANCICLOVIR SODIUM
Strength: EQ 500MG BASE/VIAL
Dosage Form/Route: INJECTABLE;INJECTION
Application: A212001 | Product #001
Applicant: CUSTOPHARM INC
Approved: Jun 20, 2019 | RLD: No | RS: No | Type: DISCN